FAERS Safety Report 19718156 (Version 2)
Quarter: 2021Q3

REPORT INFORMATION
  Report Type: Spontaneous
  Country: IN (occurrence: IN)
  Receive Date: 20210819
  Receipt Date: 20210930
  Transmission Date: 20211014
  Serious: Yes (Death)
  Sender: FDA-Public Use
  Company Number: IN-PFIZER INC-2019167190

PATIENT
  Age: 65 Year
  Sex: Female

DRUGS (10)
  1. DEXAMETHASONE. [Concomitant]
     Active Substance: DEXAMETHASONE
     Dosage: 4 MG, CYCLIC, 1?0?1 X 3 DAYS FOLLOWED BY 4MG 1?0?0 X 3 DAYS THEN STOP
  2. LETROZOLE. [Concomitant]
     Active Substance: LETROZOLE
     Dosage: 2.5 MG (1?0?0)
  3. PANTOCID [PANTOPRAZOLE SODIUM SESQUIHYDRATE] [Concomitant]
     Active Substance: PANTOPRAZOLE SODIUM
     Dosage: 40 MG, 1?0?0 X 5 DAYS
  4. ULTRACET [Concomitant]
     Active Substance: ACETAMINOPHEN\TRAMADOL HYDROCHLORIDE
     Dosage: 1 DF, AS NEEDED
  5. ZOLDONAT [Concomitant]
     Dosage: 4 MG
     Route: 042
     Dates: start: 20181020
  6. PALBACE [Suspect]
     Active Substance: PALBOCICLIB
     Indication: BREAST CANCER METASTATIC
     Dosage: 125 MG, ONCE DAILY 21/28 DAYS
     Route: 048
     Dates: start: 20181024, end: 202104
  7. UPRISE D3 [Concomitant]
     Dosage: 60000 IU, WEEKLY
  8. BONMIN [CALCITRIOL;CALCIUM CARBONATE;ZINC] [Concomitant]
     Dosage: 0?0?1
  9. LANOL [PARACETAMOL] [Concomitant]
     Dosage: 1?0?1
  10. DUPHALAC [Concomitant]
     Active Substance: LACTULOSE
     Dosage: 30 ML, AS NEEDED

REACTIONS (5)
  - Full blood count decreased [Recovered/Resolved]
  - Haemoglobin decreased [Recovered/Resolved]
  - Platelet count decreased [Recovered/Resolved]
  - Nausea [Recovered/Resolved]
  - Neoplasm progression [Fatal]
